FAERS Safety Report 25383556 (Version 1)
Quarter: 2025Q2

REPORT INFORMATION
  Report Type: Report from Study
  Country: US (occurrence: US)
  Receive Date: 20250602
  Receipt Date: 20250602
  Transmission Date: 20250717
  Serious: Yes (Other)
  Sender: ABBVIE
  Company Number: US-ABBVIE-6306056

PATIENT
  Sex: Male

DRUGS (1)
  1. SKYRIZI [Suspect]
     Active Substance: RISANKIZUMAB-RZAA
     Indication: Colitis ulcerative
     Route: 058
     Dates: start: 20241024

REACTIONS (6)
  - Intestinal resection [Recovering/Resolving]
  - Nausea [Recovering/Resolving]
  - Night sweats [Not Recovered/Not Resolved]
  - Pain [Not Recovered/Not Resolved]
  - Colitis [Not Recovered/Not Resolved]
  - Large intestinal ulcer [Not Recovered/Not Resolved]
